FAERS Safety Report 7354507-8 (Version None)
Quarter: 2011Q1

REPORT INFORMATION
  Report Type: 
  Country: None (occurrence: None)
  Receive Date: 20110316
  Receipt Date: 20100908
  Transmission Date: 20110831
  Serious: Yes (Other)
  Sender: FDA-Public Use
  Company Number: US-BAYER-201019745NA

PATIENT
  Sex: Female
  Weight: 104.31 kg

DRUGS (9)
  1. YAZ [Suspect]
     Indication: ORAL CONTRACEPTION
     Dosage: UNK
     Route: 048
     Dates: start: 20060101, end: 20080101
  2. PROMETHAZINE [Concomitant]
  3. SERTRALINE [Concomitant]
  4. TETRACYCLIN [Concomitant]
  5. YASMIN [Suspect]
     Indication: PRODUCT USED FOR UNKNOWN INDICATION
     Route: 048
  6. DICYCLOMINE [Concomitant]
  7. PROZAC [Concomitant]
  8. YAZ [Suspect]
     Indication: MENSTRUAL CYCLE MANAGEMENT
  9. TRAMADOL [Concomitant]

REACTIONS (6)
  - GALLBLADDER CHOLESTEROLOSIS [None]
  - SCAR [None]
  - VOMITING [None]
  - INJURY [None]
  - CHOLECYSTITIS CHRONIC [None]
  - ABDOMINAL PAIN [None]
